FAERS Safety Report 18626984 (Version 2)
Quarter: 2021Q2

REPORT INFORMATION
  Report Type: Other
  Country: BG (occurrence: BG)
  Receive Date: 20201217
  Receipt Date: 20210611
  Transmission Date: 20210717
  Serious: No
  Sender: FDA-Public Use
  Company Number: BG-ROCHE-2731241

PATIENT
  Age: 47 Year
  Sex: Male
  Weight: 74.5 kg

DRUGS (10)
  1. OCRELIZUMAB. [Suspect]
     Active Substance: OCRELIZUMAB
     Dosage: 300 MG/ 250 ML
     Route: 042
     Dates: start: 20200806, end: 20200806
  2. BISOPROLOL [Concomitant]
     Active Substance: BISOPROLOL
     Dates: start: 2018
  3. AZITHROMYCIN ANHYDROUS. [Concomitant]
     Active Substance: AZITHROMYCIN ANHYDROUS
  4. METHYLPREDNISOLONE. [Concomitant]
     Active Substance: METHYLPREDNISOLONE
     Route: 042
     Dates: start: 20210126, end: 20210126
  5. OCRELIZUMAB. [Suspect]
     Active Substance: OCRELIZUMAB
     Dosage: 600 MG/500 ML
     Route: 042
     Dates: start: 20210126, end: 20210126
  6. HYDROCHLORTHIAZID [Concomitant]
     Active Substance: HYDROCHLOROTHIAZIDE
  7. MIRABEGRON [Concomitant]
     Active Substance: MIRABEGRON
  8. OCRELIZUMAB. [Suspect]
     Active Substance: OCRELIZUMAB
     Indication: MULTIPLE SCLEROSIS
     Dosage: 300 MG/ 250 ML
     Route: 042
     Dates: start: 20200724, end: 20200724
  9. PARACETAMOL [Concomitant]
     Active Substance: ACETAMINOPHEN
  10. ALERGOSAN [Concomitant]
     Route: 048
     Dates: start: 20210126, end: 20210126

REACTIONS (1)
  - COVID-19 [Recovered/Resolved]

NARRATIVE: CASE EVENT DATE: 20201106
